FAERS Safety Report 21784507 (Version 1)
Quarter: 2022Q4

REPORT INFORMATION
  Report Type: Spontaneous
  Country: AU (occurrence: AU)
  Receive Date: 20221227
  Receipt Date: 20221227
  Transmission Date: 20230112
  Serious: Yes (Hospitalization)
  Sender: FDA-Public Use
  Company Number: AU-PFIZER INC-PV202200126688

PATIENT
  Age: 79 Year
  Sex: Female
  Weight: 62 kg

DRUGS (12)
  1. METHOTREXATE SODIUM [Suspect]
     Active Substance: METHOTREXATE SODIUM
     Indication: Crohn^s disease
     Dosage: 10 MG
  2. METHOTREXATE SODIUM [Suspect]
     Active Substance: METHOTREXATE SODIUM
     Dosage: 20 MG
     Dates: start: 20220602
  3. INFLIXIMAB [Concomitant]
     Active Substance: INFLIXIMAB
     Indication: Crohn^s disease
     Dosage: 10 MG/KG, Q4W (4 WEEKLY)
  4. ASPIRIN [Concomitant]
     Active Substance: ASPIRIN
  5. CANDESARTAN [Concomitant]
     Active Substance: CANDESARTAN
  6. FONAT PLUS [Concomitant]
  7. FOLATE SODIUM [Concomitant]
     Active Substance: FOLATE SODIUM
     Dosage: 6 DAYS A WEEK
  8. BUDESONIDE [Concomitant]
     Active Substance: BUDESONIDE
     Dosage: 9 MG, DAILY
  9. BUDESONIDE [Concomitant]
     Active Substance: BUDESONIDE
     Dosage: NIGHTLY
     Dates: end: 2022
  10. MESALAMINE [Concomitant]
     Active Substance: MESALAMINE
  11. NORMAFIBE [Concomitant]
     Dosage: IN THE AM
  12. MESALAMINE [Concomitant]
     Active Substance: MESALAMINE
     Dosage: 3 G, DAILY

REACTIONS (4)
  - Condition aggravated [Unknown]
  - Pyrexia [Unknown]
  - Tachycardia [Unknown]
  - Off label use [Unknown]

NARRATIVE: CASE EVENT DATE: 20221215
